FAERS Safety Report 8126211-X (Version None)
Quarter: 2012Q1

REPORT INFORMATION
  Report Type: 
  Country: None (occurrence: None)
  Receive Date: 20120209
  Receipt Date: 20120207
  Transmission Date: 20120608
  Serious: Yes (Death, Hospitalization, Other)
  Sender: FDA-Public Use
  Company Number: PHEH2006US08085

PATIENT
  Sex: Female
  Weight: 61 kg

DRUGS (31)
  1. AREDIA [Suspect]
     Indication: BREAST CANCER METASTATIC
  2. FEMARA [Concomitant]
     Dosage: 2.5 MG,
  3. KLOR-CON [Concomitant]
     Dosage: 10 MEQ,
  4. ZOLOFT [Concomitant]
     Dosage: 25MG, ONCE DAILY
  5. MIRALAX [Concomitant]
     Indication: CONSTIPATION
  6. FASLODEX [Concomitant]
     Dosage: 250 MG,
  7. TEMAZEPAM [Concomitant]
  8. FUROSEMIDE [Concomitant]
     Dosage: 20 MG,
  9. MECLIZINE [Concomitant]
     Dosage: 25 MG,
  10. ADVAIR DISKUS 100/50 [Concomitant]
     Indication: ASTHMA
  11. TAMOXIFEN CITRATE [Concomitant]
  12. BENGAY [Concomitant]
  13. LASIX [Concomitant]
     Dosage: 20 MG, QD
  14. DILTIAZEM HYDROCHLORIDE [Concomitant]
     Indication: BLOOD PRESSURE
     Dosage: 360 MG, QD
  15. VITAMIN B-12 [Concomitant]
     Dosage: 100 MG, QD
  16. WARFARIN SODIUM [Concomitant]
     Indication: ANTICOAGULANT THERAPY
     Dosage: 5 MG, QD
  17. DILTIA XT [Concomitant]
     Dosage: 240 MG, QD
  18. ALBUTEROL [Concomitant]
  19. ZOMETA [Suspect]
     Indication: BREAST CANCER METASTATIC
     Dosage: 4 MG, QMO
  20. SINGULAIR [Concomitant]
     Indication: ASTHMA
     Dosage: 10 MG, QD
  21. ZOLOFT [Concomitant]
     Dosage: 50 MG,
  22. COLACE [Concomitant]
  23. ACYCLOVIR [Concomitant]
     Dosage: 200 MG, UNK
  24. IBUPROFEN (ADVIL) [Concomitant]
     Indication: PAIN
  25. FLEXERIL [Concomitant]
     Dosage: 10 MG, UNK
  26. FLAGYL [Concomitant]
     Dosage: 500 MG, UNK
  27. KEFLEX [Concomitant]
     Dosage: 500 MG, UNK
  28. CYCLOBENZAPRINE [Concomitant]
     Dosage: 10 MG, UNK
  29. OXYCODONE HCL [Concomitant]
     Dosage: 5 MG,
  30. VITAMIN B-12 [Concomitant]
     Dosage: 100 MG, QD
  31. DICLOXACILLIN [Concomitant]

REACTIONS (88)
  - DEATH [None]
  - ORAL PAIN [None]
  - HYPOAESTHESIA ORAL [None]
  - VOMITING [None]
  - DILATATION ATRIAL [None]
  - RADICULOPATHY [None]
  - DECREASED APPETITE [None]
  - LEUKOCYTOSIS [None]
  - RENAL CYST [None]
  - HEPATIC LESION [None]
  - SEBORRHOEIC KERATOSIS [None]
  - GASTROENTERITIS [None]
  - TACHYCARDIA [None]
  - RETINAL VEIN OCCLUSION [None]
  - ATRIAL FLUTTER [None]
  - INTERVERTEBRAL DISC DEGENERATION [None]
  - NECK PAIN [None]
  - VARICOSE VEIN [None]
  - OEDEMA PERIPHERAL [None]
  - SIALOADENITIS [None]
  - SYNCOPE [None]
  - INSOMNIA [None]
  - PAIN IN JAW [None]
  - RENAL FAILURE ACUTE [None]
  - DEHYDRATION [None]
  - VISUAL ACUITY REDUCED [None]
  - METASTASES TO BONE [None]
  - DIZZINESS [None]
  - RETROPERITONEAL CANCER [None]
  - PANCREATITIS ACUTE [None]
  - ROTATOR CUFF SYNDROME [None]
  - ECZEMA [None]
  - ANXIETY [None]
  - DECREASED INTEREST [None]
  - DENTAL CARIES [None]
  - HYPERKALAEMIA [None]
  - ANAEMIA [None]
  - MITRAL VALVE INCOMPETENCE [None]
  - MALIGNANT PERITONEAL NEOPLASM [None]
  - SKIN CANCER [None]
  - ASCITES [None]
  - ADRENAL DISORDER [None]
  - EATING DISORDER [None]
  - ERYTHEMA [None]
  - CARDIAC FAILURE CONGESTIVE [None]
  - TRICUSPID VALVE INCOMPETENCE [None]
  - AORTIC CALCIFICATION [None]
  - AORTIC ARTERIOSCLEROSIS [None]
  - JOINT RANGE OF MOTION DECREASED [None]
  - ASTHENIA [None]
  - FATIGUE [None]
  - WEIGHT DECREASED [None]
  - HEPATIC NEOPLASM MALIGNANT [None]
  - ATELECTASIS [None]
  - SEBORRHOEA [None]
  - GAIT DISTURBANCE [None]
  - INFLUENZA [None]
  - COSTOCHONDRITIS [None]
  - PAIN [None]
  - BONE DISORDER [None]
  - RETINAL HAEMORRHAGE [None]
  - PULMONARY HYPERTENSION [None]
  - TREMOR [None]
  - PLEURAL EFFUSION [None]
  - ABDOMINAL PAIN [None]
  - MUSCULOSKELETAL PAIN [None]
  - VASCULAR CALCIFICATION [None]
  - BONE PAIN [None]
  - OSTEONECROSIS OF JAW [None]
  - EXOSTOSIS [None]
  - CARDIOMEGALY [None]
  - RIB FRACTURE [None]
  - FALL [None]
  - GLOSSITIS [None]
  - DIVERTICULUM INTESTINAL [None]
  - CHOLELITHIASIS [None]
  - RHINITIS [None]
  - GENERAL PHYSICAL HEALTH DETERIORATION [None]
  - CHEST PAIN [None]
  - ARRHYTHMIA [None]
  - OSTEOARTHRITIS [None]
  - SPINAL OSTEOARTHRITIS [None]
  - DYSPNOEA [None]
  - CONSTIPATION [None]
  - ABSCESS [None]
  - INTESTINAL OBSTRUCTION [None]
  - SWELLING [None]
  - URINARY TRACT INFECTION [None]
